FAERS Safety Report 4821502-X (Version None)
Quarter: 2005Q4

REPORT INFORMATION
  Report Type: 
  Country: None (occurrence: None)
  Receive Date: 20051107
  Receipt Date: 20051029
  Transmission Date: 20060501
  Serious: Yes (Hospitalization, Disabling)
  Sender: FDA-Public Use
  Company Number: GB-GLAXOSMITHKLINE-B0398766A

PATIENT
  Age: 79 Year
  Sex: Female

DRUGS (2)
  1. SEREVENT [Suspect]
     Indication: CHRONIC OBSTRUCTIVE PULMONARY DISEASE
     Route: 055
     Dates: start: 20050914, end: 20050923
  2. ORAL STEROIDS [Concomitant]
     Route: 048
     Dates: start: 20040801

REACTIONS (1)
  - EXFOLIATIVE RASH [None]
